FAERS Safety Report 7684750-X (Version None)
Quarter: 2011Q3

REPORT INFORMATION
  Report Type: 
  Country: None (occurrence: None)
  Receive Date: 20110816
  Receipt Date: 20110803
  Transmission Date: 20111222
  Serious: Yes (Hospitalization)
  Sender: FDA-Public Use
  Company Number: US-ELI_LILLY_AND_COMPANY-US201104003328

PATIENT
  Sex: Female

DRUGS (10)
  1. FORTEO [Suspect]
     Dosage: 20 UG, QD
     Route: 065
     Dates: end: 20110427
  2. HYDROCODONE [Concomitant]
     Dosage: UNK, QD
  3. PROTONIX [Concomitant]
     Dosage: UNK, BID
  4. CELEBREX [Concomitant]
  5. LIBRAX [Concomitant]
     Dosage: UNK, PRN
  6. TOFRANIL [Concomitant]
  7. PLAQUENIL [Concomitant]
     Dosage: UNK, QD
  8. ROPINIROLE [Concomitant]
  9. FORTEO [Suspect]
     Indication: OSTEOPOROSIS
     Dosage: 20 UG, QD
     Route: 065
     Dates: start: 20110315
  10. FLEXERIL [Concomitant]
     Dosage: UNK, TID

REACTIONS (5)
  - KNEE ARTHROPLASTY [None]
  - INJECTION SITE HAEMORRHAGE [None]
  - JOINT STIFFNESS [None]
  - SURGERY [None]
  - DRUG DOSE OMISSION [None]
